FAERS Safety Report 9886869 (Version 2)
Quarter: 2014Q1

REPORT INFORMATION
  Report Type: Spontaneous
  Country: US (occurrence: US)
  Receive Date: 20140210
  Receipt Date: 20140220
  Transmission Date: 20141002
  Serious: Yes (Hospitalization)
  Sender: FDA-Public Use
  Company Number: US-MERCK-1402USA002342

PATIENT
  Sex: Female

DRUGS (8)
  1. PEGINTRON [Suspect]
     Indication: HEPATITIS C
     Dosage: 0.4 ML, QW,REDIPEN
     Dates: start: 20131203
  2. REBETOL [Suspect]
     Indication: HEPATITIS C
     Dosage: 400 MG, BID
     Route: 048
     Dates: start: 20131202
  3. TELAPREVIR [Suspect]
     Indication: HEPATITIS C
     Dosage: 400 MG, Q8H
     Route: 048
     Dates: start: 20131202
  4. FUROSEMIDE [Concomitant]
     Dosage: 20 MG, QD
     Route: 048
  5. AMLODIPINE [Concomitant]
     Dosage: 1 EVERY AM
  6. BENAZEPRIL HYDROCHLORIDE [Concomitant]
     Dosage: 20 MG, QD
  7. LACTULOSE [Suspect]
     Dosage: 1 TABLETSPOON
  8. SPIRONOLACT [Concomitant]
     Dosage: 1000 MG, QD

REACTIONS (11)
  - Blood potassium decreased [Recovered/Resolved]
  - Influenza like illness [Recovered/Resolved]
  - Nasopharyngitis [Recovered/Resolved]
  - Malaise [Recovered/Resolved]
  - Body temperature increased [Recovered/Resolved]
  - Blood pressure decreased [Recovered/Resolved]
  - Fatigue [Recovered/Resolved]
  - Boredom [Recovered/Resolved]
  - Irritability [Recovered/Resolved]
  - Dry skin [Recovered/Resolved]
  - Overdose [Unknown]
